FAERS Safety Report 23941300 (Version 2)
Quarter: 2024Q3

REPORT INFORMATION
  Report Type: Spontaneous
  Country: JO (occurrence: JO)
  Receive Date: 20240605
  Receipt Date: 20240912
  Transmission Date: 20241017
  Serious: No
  Sender: PFIZER
  Company Number: JO-PFIZER INC-202400182583

PATIENT

DRUGS (1)
  1. GENOTROPIN [Suspect]
     Active Substance: SOMATROPIN
     Indication: Growth hormone deficiency
     Dosage: 0.8 MG
     Dates: start: 20240514, end: 20240523

REACTIONS (2)
  - Device use error [Unknown]
  - Incorrect dose administered [Unknown]

NARRATIVE: CASE EVENT DATE: 20240519
